FAERS Safety Report 5117768-1 (Version None)
Quarter: 2006Q3

REPORT INFORMATION
  Report Type: 
  Country: None (occurrence: None)
  Receive Date: 20060929
  Receipt Date: 20060925
  Transmission Date: 20061208
  Serious: Yes (Other)
  Sender: FDA-Public Use
  Company Number: ES-GLAXOSMITHKLINE-B0440091A

PATIENT
  Age: 25 Year
  Sex: Female

DRUGS (1)
  1. AUGMENTIN [Suspect]
     Indication: TONSILLITIS
     Route: 048
     Dates: start: 20060918, end: 20060925

REACTIONS (3)
  - ABDOMINAL PAIN UPPER [None]
  - GASTRITIS [None]
  - HAEMATEMESIS [None]
